FAERS Safety Report 11887600 (Version 14)
Quarter: 2025Q1

REPORT INFORMATION
  Report Type: Spontaneous
  Country: GB (occurrence: GB)
  Receive Date: 20160105
  Receipt Date: 20250329
  Transmission Date: 20250409
  Serious: Yes (Hospitalization, Other)
  Sender: AUROBINDO
  Company Number: GB-AUROBINDO-AUR-APL-2015-11984

PATIENT
  Age: 12 Year
  Sex: Female

DRUGS (18)
  1. IBUPROFEN [Suspect]
     Active Substance: IBUPROFEN
     Indication: Product used for unknown indication
     Route: 065
  2. ACETAMINOPHEN [Suspect]
     Active Substance: ACETAMINOPHEN
     Indication: Product used for unknown indication
     Route: 065
  3. VENLAFAXINE [Suspect]
     Active Substance: VENLAFAXINE HYDROCHLORIDE
     Indication: Product used for unknown indication
     Route: 065
  4. IBUPROFEN [Suspect]
     Active Substance: IBUPROFEN
     Indication: Product used for unknown indication
     Route: 048
  5. IBUPROFEN [Suspect]
     Active Substance: IBUPROFEN
     Route: 065
  6. IBUPROFEN [Suspect]
     Active Substance: IBUPROFEN
     Route: 048
  7. IBUPROFEN [Suspect]
     Active Substance: IBUPROFEN
     Route: 048
  8. IBUPROFEN [Suspect]
     Active Substance: IBUPROFEN
     Route: 048
  9. IBUPROFEN [Suspect]
     Active Substance: IBUPROFEN
     Route: 048
  10. IBUPROFEN [Suspect]
     Active Substance: IBUPROFEN
     Route: 065
  11. IBUPROFEN [Suspect]
     Active Substance: IBUPROFEN
     Route: 065
  12. IBUPROFEN [Suspect]
     Active Substance: IBUPROFEN
     Route: 065
  13. PFIZER-BIONTECH COVID-19 VACCINE [Suspect]
     Active Substance: TOZINAMERAN
     Indication: COVID-19 immunisation
     Route: 065
     Dates: start: 20211026
  14. PFIZER-BIONTECH COVID-19 VACCINE [Suspect]
     Active Substance: TOZINAMERAN
     Route: 065
     Dates: start: 20211026, end: 20211026
  15. COMIRNATY (TOZINAMERAN) [Suspect]
     Active Substance: TOZINAMERAN
     Indication: COVID-19 immunisation
     Route: 065
     Dates: start: 20211026
  16. COMIRNATY (TOZINAMERAN) [Suspect]
     Active Substance: TOZINAMERAN
     Route: 065
     Dates: start: 20211026
  17. PFIZER-BIONTECH COVID-19 VACCINE [Suspect]
     Active Substance: TOZINAMERAN
     Indication: Immunisation
     Route: 065
     Dates: start: 20211026
  18. PFIZER-BIONTECH COVID-19 VACCINE [Suspect]
     Active Substance: TOZINAMERAN
     Indication: COVID-19 immunisation

REACTIONS (15)
  - Tachycardia [Unknown]
  - Dysstasia [Unknown]
  - Visual impairment [Unknown]
  - Ataxia [Recovering/Resolving]
  - Hypertension [Unknown]
  - Dizziness [Not Recovered/Not Resolved]
  - Chills [Unknown]
  - Mydriasis [Not Recovered/Not Resolved]
  - Overdose [Unknown]
  - Dyspnoea [Unknown]
  - Chest pain [Recovering/Resolving]
  - Palpitations [Recovering/Resolving]
  - Myocarditis [Unknown]
  - Pericarditis [Unknown]
  - Inappropriate schedule of product administration [Unknown]

NARRATIVE: CASE EVENT DATE: 20211026
